FAERS Safety Report 7385455-5 (Version None)
Quarter: 2011Q1

REPORT INFORMATION
  Report Type: 
  Country: None (occurrence: None)
  Receive Date: 20110330
  Receipt Date: 20101101
  Transmission Date: 20110831
  Serious: Yes (Other)
  Sender: FDA-Public Use
  Company Number: US-AMGEN-USASP2010002887

PATIENT
  Age: 50 Year
  Sex: Female

DRUGS (1)
  1. NPLATE [Suspect]
     Indication: THROMBOCYTOPENIA
     Dosage: 10 A?G/KG, UNK
     Dates: start: 20100113, end: 20100401

REACTIONS (1)
  - DRUG INEFFECTIVE [None]
